FAERS Safety Report 16564342 (Version 1)
Quarter: 2019Q3

REPORT INFORMATION
  Report Type: Spontaneous
  Country: ES (occurrence: ES)
  Receive Date: 20190712
  Receipt Date: 20190712
  Transmission Date: 20191004
  Serious: Yes (Hospitalization)
  Sender: FDA-Public Use
  Company Number: ES-ZYDUS-038497

PATIENT
  Age: 34 Year
  Sex: Female

DRUGS (3)
  1. TRAMADOL. [Suspect]
     Active Substance: TRAMADOL
     Indication: ANALGESIC THERAPY
     Route: 065
     Dates: start: 20180913, end: 20180917
  2. DEXKETOPROFEN [Suspect]
     Active Substance: DEXKETOPROFEN
     Indication: ANALGESIC THERAPY
     Dosage: 25 MG, GRANULATE FOR ORAL SOLUTION, 20 SACHETS
     Route: 065
     Dates: start: 20180823, end: 20180917
  3. CEFUROXIME. [Suspect]
     Active Substance: CEFUROXIME
     Indication: BIOPSY MUSCLE
     Dosage: 1000 MG
     Route: 065
     Dates: start: 20180823, end: 20180917

REACTIONS (3)
  - Balance disorder [Recovered/Resolved]
  - Headache [Recovered/Resolved]
  - Dizziness [Recovered/Resolved]

NARRATIVE: CASE EVENT DATE: 20180917
